FAERS Safety Report 24564968 (Version 6)
Quarter: 2025Q1

REPORT INFORMATION
  Report Type: Spontaneous
  Country: US (occurrence: US)
  Receive Date: 20241030
  Receipt Date: 20250305
  Transmission Date: 20250409
  Serious: No
  Sender: PFIZER
  Company Number: US-PFIZER INC-202400286781

PATIENT
  Age: 13 Year
  Sex: Male

DRUGS (3)
  1. GENOTROPIN [Suspect]
     Active Substance: SOMATROPIN
     Dosage: 1.2 MG, ALTERNATE DAY (ALTERNATE WITH 1.4 MG INJECTION DAILY)
  2. GENOTROPIN [Suspect]
     Active Substance: SOMATROPIN
     Dosage: 1.4 MG, ALTERNATE DAY (ALTERNATE WITH 1.2 MG INJECTION DAILY)
  3. GENOTROPIN [Suspect]
     Active Substance: SOMATROPIN
     Dosage: 0.6 MG, DAILY

REACTIONS (2)
  - Drug dose omission by device [Unknown]
  - Device connection issue [Unknown]
